FAERS Safety Report 9619768 (Version 3)
Quarter: 2013Q4

REPORT INFORMATION
  Report Type: Report from Study
  Country: BE (occurrence: BE)
  Receive Date: 20131014
  Receipt Date: 20131219
  Transmission Date: 20140711
  Serious: Yes (Hospitalization)
  Sender: FDA-Public Use
  Company Number: BE-VIIV HEALTHCARE LIMITED-B0924637A

PATIENT
  Age: 49 Year
  Sex: Male
  Weight: 68 kg

DRUGS (7)
  1. MARAVIROC [Suspect]
     Indication: HIV INFECTION
     Dosage: 300MG TWICE PER DAY
     Route: 048
     Dates: start: 20110427
  2. ETRAVIRINE [Concomitant]
     Indication: HIV INFECTION
     Route: 048
     Dates: start: 20091119
  3. DARUNAVIR [Concomitant]
     Indication: HIV INFECTION
     Route: 048
     Dates: start: 20091119
  4. RITONAVIR [Concomitant]
     Indication: HIV INFECTION
     Route: 048
     Dates: start: 20091119
  5. RALTEGRAVIR [Concomitant]
     Indication: HIV INFECTION
     Route: 048
     Dates: start: 20091119
  6. CARDIOASPIRINE [Concomitant]
  7. BISOPROLOL [Concomitant]

REACTIONS (1)
  - Acute myocardial infarction [Recovered/Resolved]
